FAERS Safety Report 10067864 (Version 5)
Quarter: 2014Q2

REPORT INFORMATION
  Report Type: Spontaneous
  Country: US (occurrence: US)
  Receive Date: 20140409
  Receipt Date: 20140629
  Transmission Date: 20141212
  Serious: Yes (Other)
  Sender: FDA-Public Use
  Company Number: PHEH2014US006850

PATIENT
  Age: 35 Year
  Sex: Male
  Weight: 125.8 kg

DRUGS (3)
  1. GILENYA [Suspect]
     Indication: MULTIPLE SCLEROSIS
     Dosage: 1 DF, QD
     Route: 048
     Dates: start: 20131209, end: 20140212
  2. VITAMIN D [Concomitant]
     Indication: MULTIPLE SCLEROSIS
     Dosage: 50000 MG, DAILY
     Route: 048
     Dates: start: 20100521
  3. VITAMIN B12 [Concomitant]
     Indication: MULTIPLE SCLEROSIS
     Dosage: 10000 MG, DAILY
     Route: 048
     Dates: start: 20110323

REACTIONS (8)
  - Hodgkin^s disease nodular sclerosis [Not Recovered/Not Resolved]
  - Lymph node pain [Unknown]
  - Lymphadenopathy [Unknown]
  - Neck mass [Recovered/Resolved]
  - Computerised tomogram abnormal [Unknown]
  - Pneumonia [Unknown]
  - Bronchitis [Unknown]
  - Leukopenia [Unknown]
